FAERS Safety Report 16024752 (Version 1)
Quarter: 2019Q1

REPORT INFORMATION
  Report Type: Spontaneous
  Country: US (occurrence: US)
  Receive Date: 20190301
  Receipt Date: 20190301
  Transmission Date: 20190418
  Serious: Yes (Other)
  Sender: FDA-Public Use
  Company Number: US-SHIRE-US201906162

PATIENT
  Sex: Male

DRUGS (2)
  1. S-MED [Concomitant]
     Indication: GLAUCOMA
  2. XIIDRA [Suspect]
     Active Substance: LIFITEGRAST
     Indication: DRY EYE
     Route: 047

REACTIONS (1)
  - Ulcerative keratitis [Unknown]
